FAERS Safety Report 19819792 (Version 9)
Quarter: 2022Q1

REPORT INFORMATION
  Report Type: Report from Study
  Country: US (occurrence: US)
  Receive Date: 20210913
  Receipt Date: 20220206
  Transmission Date: 20220423
  Serious: Yes (Other)
  Sender: FDA-Public Use
  Company Number: NVSC2021US206639

PATIENT
  Sex: Male

DRUGS (4)
  1. ENTRESTO [Suspect]
     Active Substance: SACUBITRIL\VALSARTAN
     Indication: Product used for unknown indication
     Dosage: 200 MG, (97/103 MG)
     Route: 065
     Dates: start: 2016
  2. AMIODARONE [Suspect]
     Active Substance: AMIODARONE
     Indication: Product used for unknown indication
     Dosage: UNK
     Route: 065
     Dates: start: 2016, end: 2016
  3. CARVEDILOL [Concomitant]
     Active Substance: CARVEDILOL
     Indication: Product used for unknown indication
     Dosage: 25 MG, BID
     Route: 065
     Dates: start: 2015
  4. PREDNISONE [Concomitant]
     Active Substance: PREDNISONE
     Indication: Product used for unknown indication
     Dosage: UNK
     Route: 065

REACTIONS (13)
  - Sarcoidosis [Recovering/Resolving]
  - Condition aggravated [Recovering/Resolving]
  - Chromaturia [Recovered/Resolved]
  - Irritable bowel syndrome [Recovering/Resolving]
  - Ventricular extrasystoles [Recovered/Resolved]
  - Urinary incontinence [Not Recovered/Not Resolved]
  - Sinus disorder [Unknown]
  - Blood potassium increased [Recovering/Resolving]
  - Blood pressure increased [Not Recovered/Not Resolved]
  - Skin atrophy [Recovering/Resolving]
  - Contusion [Recovering/Resolving]
  - Malaise [Recovering/Resolving]
  - Fatigue [Recovering/Resolving]

NARRATIVE: CASE EVENT DATE: 20160101
